FAERS Safety Report 10385900 (Version 2)
Quarter: 2014Q3

REPORT INFORMATION
  Report Type: Spontaneous
  Country: US (occurrence: US)
  Receive Date: 20140814
  Receipt Date: 20140814
  Transmission Date: 20150326
  Serious: No
  Sender: FDA-Public Use
  Company Number: US-GALDERMA-US13002559

PATIENT
  Age: 33 Year
  Sex: Female

DRUGS (11)
  1. GARLIC. [Concomitant]
     Active Substance: GARLIC
     Route: 048
  2. SKIN SO HEALTHY [Concomitant]
     Route: 048
  3. DOVE SENSITIVE BAR SOAP [Concomitant]
  4. FLAXSEED [Concomitant]
     Active Substance: FLAX SEED
     Route: 048
  5. MIESSENCE ORGANIC PURIFYING CONDITIONER [Concomitant]
     Route: 061
  6. MIESSENCE ORGANIC PURIFYING GEL [Concomitant]
     Indication: ACNE
     Route: 061
  7. ORGANIC SHAMPOO [Concomitant]
     Indication: THERAPEUTIC SKIN CARE TOPICAL
     Route: 061
  8. COD LIVER OIL [Concomitant]
     Active Substance: COD LIVER OIL
     Route: 048
  9. VITAMIN D [Concomitant]
     Active Substance: CHOLECALCIFEROL
     Route: 048
     Dates: start: 201207
  10. MIESSENCE ORGANIC PURIFYING MOISTURIZER [Concomitant]
     Indication: ACNE
     Route: 061
  11. DIFFERIN [Suspect]
     Active Substance: ADAPALENE
     Indication: ACNE
     Route: 061
     Dates: start: 20130429

REACTIONS (4)
  - Seborrhoea [Not Recovered/Not Resolved]
  - Incorrect product storage [Recovered/Resolved]
  - Drug effect decreased [Not Recovered/Not Resolved]
  - Acne [Not Recovered/Not Resolved]

NARRATIVE: CASE EVENT DATE: 201307
